FAERS Safety Report 7017014-8 (Version None)
Quarter: 2010Q3

REPORT INFORMATION
  Report Type: 
  Country: None (occurrence: None)
  Receive Date: 20100927
  Receipt Date: 20100920
  Transmission Date: 20110219
  Serious: No
  Sender: FDA-Public Use
  Company Number: US-PFIZER INC-2010049368

PATIENT
  Sex: Male
  Weight: 94.785 kg

DRUGS (3)
  1. NORVASC [Suspect]
     Indication: HYPERTENSION
     Dosage: 5 MG, DAILY
     Dates: start: 20070101
  2. AMLODIPINE BESILATE [Suspect]
     Dosage: 5 MG, DAILY
     Dates: start: 20090529, end: 20100427
  3. LEXAPRO [Concomitant]
     Indication: ANXIETY
     Dosage: 20 MG, DAILY
     Dates: start: 20090101, end: 20090101

REACTIONS (6)
  - MUSCLE CONTRACTIONS INVOLUNTARY [None]
  - MUSCLE SPASMS [None]
  - MUSCLE TWITCHING [None]
  - MYALGIA [None]
  - NECK PAIN [None]
  - WEIGHT INCREASED [None]
